FAERS Safety Report 7897517-4 (Version None)
Quarter: 2011Q4

REPORT INFORMATION
  Report Type: 
  Country: None (occurrence: None)
  Receive Date: 20111107
  Receipt Date: 20111103
  Transmission Date: 20120403
  Serious: Yes (Death, Life-Threatening)
  Sender: FDA-Public Use
  Company Number: FR-PFIZER INC-2011268834

PATIENT
  Age: 56 Year
  Sex: Male

DRUGS (9)
  1. ACUPAN [Suspect]
     Dosage: 4 DF TOTAL DAILY (1DF, 1 IN 6 HOURS)
  2. PIPERACILLIN AND TAZOBACTAM [Suspect]
     Indication: LUNG INFECTION
     Dosage: 12 G TOTAL DAILY (4 G, 1 IN 8 HOURS)
     Route: 042
     Dates: start: 20110908
  3. PRIMPERAN TAB [Suspect]
     Dosage: 3 DF TOTAL DAILY (1 DF (10 MG/2 ML), 1 IN 8 HOURS)
  4. VITAMIN K1 [Suspect]
     Dosage: 10 MG, 1X/DAY
  5. PROGLYCEM [Suspect]
     Dosage: UNK; INCREASED DOSE
     Dates: start: 20100901
  6. VANCOMYCIN [Suspect]
     Dosage: 2 G, 1X/DAY
     Route: 041
     Dates: start: 20110908
  7. CIPROFLOXACIN [Suspect]
     Indication: LUNG INFECTION
     Dosage: 800 MG TOTAL DAILY (400 MG, 1 IN 12 HOURS)
     Dates: start: 20110908
  8. LOVENOX [Concomitant]
     Dosage: UNKNOWN
  9. PROGLYCEM [Suspect]
     Indication: HYPOGLYCAEMIA
     Dosage: 200 MG, 4X/DAY
     Route: 048
     Dates: start: 20110201, end: 20110901

REACTIONS (1)
  - ANAPHYLACTOID SHOCK [None]
